FAERS Safety Report 25363459 (Version 1)
Quarter: 2025Q2

REPORT INFORMATION
  Report Type: Spontaneous
  Country: MY (occurrence: MY)
  Receive Date: 20250527
  Receipt Date: 20250527
  Transmission Date: 20250717
  Serious: Yes (Hospitalization, Other)
  Sender: MERCK SHARP & DOHME LLC
  Company Number: MY-009507513-2287132

PATIENT
  Age: 51 Year
  Sex: Female

DRUGS (5)
  1. KEYTRUDA [Suspect]
     Active Substance: PEMBROLIZUMAB
  2. CARBOPLATIN [Suspect]
     Active Substance: CARBOPLATIN
  3. PACLITAXEL [Suspect]
     Active Substance: PACLITAXEL
  4. EPIRUBICIN [Suspect]
     Active Substance: EPIRUBICIN
  5. CYCLOPHOSPHAMIDE [Suspect]
     Active Substance: CYCLOPHOSPHAMIDE

REACTIONS (17)
  - Thrombocytopenia [Unknown]
  - Fatigue [Unknown]
  - Rash maculo-papular [Unknown]
  - Dyspnoea exertional [Unknown]
  - Vomiting [Unknown]
  - Stomatitis [Unknown]
  - Alopecia [Unknown]
  - Breast mass [Unknown]
  - Cough [Unknown]
  - Mucosal inflammation [Unknown]
  - Pyrexia [Unknown]
  - Decreased appetite [Unknown]
  - Graves^ disease [Unknown]
  - Lethargy [Unknown]
  - Hypertransaminasaemia [Recovered/Resolved]
  - Malaise [Unknown]
  - Thyrotoxic crisis [Unknown]
